FAERS Safety Report 26195317 (Version 1)
Quarter: 2025Q4

REPORT INFORMATION
  Report Type: Spontaneous
  Country: US (occurrence: US)
  Receive Date: 20251224
  Receipt Date: 20251224
  Transmission Date: 20260118
  Serious: Yes (Death)
  Sender: Phathom Pharmaceuticals
  Company Number: US-PHATHOM PHARMACEUTICALS INC.-2025PHT03738

PATIENT
  Age: 75 Year
  Sex: Male
  Weight: 72 kg

DRUGS (32)
  1. VOQUEZNA [Suspect]
     Active Substance: VONOPRAZAN FUMARATE
     Indication: Oesophagitis
     Dosage: 20 MG, 1X/DAY
     Route: 048
     Dates: start: 20250902, end: 2025
  2. MIRTAZAPINE [Concomitant]
     Active Substance: MIRTAZAPINE
  3. METOPROLOL SUCCINATE [Concomitant]
     Active Substance: METOPROLOL SUCCINATE
  4. MELATONIN [Concomitant]
     Active Substance: MELATONIN
  5. Lubricant Eye Drops [Concomitant]
  6. LIDOCAINE [Concomitant]
     Active Substance: LIDOCAINE
  7. LEVOFLOXACIN [Concomitant]
     Active Substance: LEVOFLOXACIN
  8. LATANOPROST [Concomitant]
     Active Substance: LATANOPROST
  9. INSULIN LISPRO [Concomitant]
     Active Substance: INSULIN LISPRO
  10. GABAPENTIN [Concomitant]
     Active Substance: GABAPENTIN
  11. FERROUS SULFATE [Concomitant]
     Active Substance: FERROUS SULFATE
  12. ELIQUIS [Concomitant]
     Active Substance: APIXABAN
  13. DOXYCYCLINE HYCLATE [Concomitant]
     Active Substance: DOXYCYCLINE HYCLATE
  14. DORZOLAMIDE [Concomitant]
     Active Substance: DORZOLAMIDE
  15. CREON [Concomitant]
     Active Substance: PANCRELIPASE AMYLASE\PANCRELIPASE LIPASE\PANCRELIPASE PROTEASE
  16. Brimonidine tartrate (bulk) [Concomitant]
  17. FOLIC ACID [Concomitant]
     Active Substance: FOLIC ACID
  18. B Complex-C [Concomitant]
  19. CALCIUM [Concomitant]
     Active Substance: CALCIUM
  20. ATORVASTATIN [Concomitant]
     Active Substance: ATORVASTATIN
  21. ASPIRIN [Concomitant]
     Active Substance: ASPIRIN
  22. TYLENOL [Concomitant]
     Active Substance: ACETAMINOPHEN
  23. GLUCAGON [Concomitant]
     Active Substance: GLUCAGON
  24. PROGRAF [Concomitant]
     Active Substance: TACROLIMUS
  25. OLANZAPINE [Concomitant]
     Active Substance: OLANZAPINE
  26. VITAMIN E [Concomitant]
     Active Substance: .ALPHA.-TOCOPHEROL
  27. TAMSULOSIN [Concomitant]
     Active Substance: TAMSULOSIN
  28. Thiamine HCI (vitamin B1) [Concomitant]
  29. SODIUM BICARBONATE [Concomitant]
     Active Substance: SODIUM BICARBONATE
  30. Prednisone (Pak) [Concomitant]
  31. Pantoprazole sodium (bulk) [Concomitant]
  32. VITAMINS [Concomitant]
     Active Substance: VITAMINS

REACTIONS (1)
  - Death [Fatal]

NARRATIVE: CASE EVENT DATE: 20250101
